FAERS Safety Report 14389483 (Version 2)
Quarter: 2018Q2

REPORT INFORMATION
  Report Type: Spontaneous
  Country: US (occurrence: US)
  Receive Date: 20180115
  Receipt Date: 20180611
  Transmission Date: 20180711
  Serious: Yes (Other)
  Sender: FDA-Public Use
  Company Number: US-SA-2017SA246049

PATIENT
  Age: 59 Year
  Sex: Female
  Weight: 97.96 kg

DRUGS (12)
  1. CYTOXAN [Concomitant]
     Active Substance: CYCLOPHOSPHAMIDE
     Indication: PRODUCT USED FOR UNKNOWN INDICATION
     Dosage: 1500 MG
     Dates: start: 20070425, end: 20070425
  2. TAXOTERE [Suspect]
     Active Substance: DOCETAXEL
     Dosage: 250 MG,Q3W
     Route: 042
     Dates: start: 20070723, end: 20070723
  3. DEXAMETHASONE. [Concomitant]
     Active Substance: DEXAMETHASONE
  4. CYTOXAN [Concomitant]
     Active Substance: CYCLOPHOSPHAMIDE
     Dosage: 1500 UNK
     Dates: start: 20070723, end: 20070723
  5. TAXOTERE [Suspect]
     Active Substance: DOCETAXEL
     Indication: BREAST CANCER FEMALE
     Dosage: 250 MG,Q3W
     Route: 042
     Dates: start: 20070425, end: 20070425
  6. NEOSAR [Concomitant]
     Active Substance: CYCLOPHOSPHAMIDE
  7. ADRIAMYCIN [DOXORUBICIN] [Concomitant]
     Dosage: 150 UNK
     Dates: start: 20070723, end: 20070723
  8. HYDROCHLOROTHIAZIDE. [Concomitant]
     Active Substance: HYDROCHLOROTHIAZIDE
  9. ADRIAMYCIN [DOXORUBICIN] [Concomitant]
     Dosage: 150 MG
     Dates: start: 20070425, end: 20070425
  10. METOPROLOL. [Concomitant]
     Active Substance: METOPROLOL
  11. LEVOTHYROXINE. [Concomitant]
     Active Substance: LEVOTHYROXINE
  12. MELOXICAM. [Concomitant]
     Active Substance: MELOXICAM

REACTIONS (2)
  - Alopecia [Recovering/Resolving]
  - Psychological trauma [Unknown]

NARRATIVE: CASE EVENT DATE: 20080123
